FAERS Safety Report 6844018-8 (Version None)
Quarter: 2010Q3

REPORT INFORMATION
  Report Type: 
  Country: None (occurrence: None)
  Receive Date: 20100715
  Receipt Date: 20100709
  Transmission Date: 20110219
  Serious: Yes (Hospitalization)
  Sender: FDA-Public Use
  Company Number: US-ELI_LILLY_AND_COMPANY-US201007002585

PATIENT
  Sex: Male

DRUGS (2)
  1. HUMULIN N [Suspect]
     Indication: TYPE 2 DIABETES MELLITUS
     Dates: start: 20100709
  2. METFORMIN HCL [Concomitant]

REACTIONS (1)
  - OESOPHAGEAL PERFORATION [None]
